FAERS Safety Report 5721955-9 (Version None)
Quarter: 2008Q2

REPORT INFORMATION
  Report Type: 
  Country: None (occurrence: None)
  Receive Date: 20080429
  Receipt Date: 20080423
  Transmission Date: 20081010
  Serious: Yes (Death, Hospitalization)
  Sender: FDA-Public Use
  Company Number: CA-BOEHRINGER INGELHEIM GMBH, GERMANY-2006-BP-04836RO

PATIENT
  Age: 48 Year
  Sex: Male

DRUGS (13)
  1. NAPROXEN [Suspect]
     Indication: BACK PAIN
     Dosage: 375 MG TID
     Route: 048
  2. TENOFOVIR DISOPROXIL FUMARATE [Suspect]
     Indication: ANTIRETROVIRAL THERAPY
  3. LOPINAVIR AND RITONAVIR [Suspect]
     Indication: ANTIRETROVIRAL THERAPY
  4. DIDANOSINE [Suspect]
     Indication: ANTIRETROVIRAL THERAPY
  5. FUROSEMIDE [Concomitant]
     Indication: ASCITES
  6. SPIRONOLACTONE [Concomitant]
     Indication: ASCITES
  7. POTASSIUM CHELATORS [Concomitant]
     Indication: BLOOD POTASSIUM INCREASED
  8. HYDRATION [Concomitant]
     Indication: BLOOD POTASSIUM INCREASED
  9. CO-TRIMOXAZOLE [Concomitant]
  10. HYDROMORPHONE HCL [Concomitant]
  11. QUININE [Concomitant]
  12. OMEPRAZOLE [Concomitant]
  13. DIMENHYDRINATE [Concomitant]

REACTIONS (2)
  - RENAL FAILURE ACUTE [None]
  - RENAL TUBULAR NECROSIS [None]
